FAERS Safety Report 20603867 (Version 1)
Quarter: 2022Q1

REPORT INFORMATION
  Report Type: Spontaneous
  Country: US (occurrence: US)
  Receive Date: 20220316
  Receipt Date: 20220316
  Transmission Date: 20220423
  Serious: No
  Sender: FDA-Public Use
  Company Number: US-SA-SAC20220314000893

PATIENT
  Age: 73 Year
  Sex: Female

DRUGS (10)
  1. DUPIXENT [Suspect]
     Active Substance: DUPILUMAB
     Indication: Illness
     Route: 058
     Dates: start: 20210428
  2. FLUOXETINE [Concomitant]
     Active Substance: FLUOXETINE HYDROCHLORIDE
  3. DULOXETINE [Concomitant]
     Active Substance: DULOXETINE
  4. PROMETHAZINE [Concomitant]
     Active Substance: PROMETHAZINE HYDROCHLORIDE
  5. AMLODIPINE [Concomitant]
     Active Substance: AMLODIPINE BESYLATE
  6. LISINOPRIL [Concomitant]
     Active Substance: LISINOPRIL
  7. DAPSONE [Concomitant]
     Active Substance: DAPSONE
  8. MUPIROCIN [Concomitant]
     Active Substance: MUPIROCIN
  9. LEVETIRACETAM [Concomitant]
     Active Substance: LEVETIRACETAM
  10. BACLOFEN [Concomitant]
     Active Substance: BACLOFEN

REACTIONS (3)
  - Injection site bruising [Unknown]
  - Injection site mass [Unknown]
  - Product use in unapproved indication [Unknown]

NARRATIVE: CASE EVENT DATE: 20210428
